FAERS Safety Report 6169942-3 (Version None)
Quarter: 2009Q2

REPORT INFORMATION
  Report Type: 
  Country: None (occurrence: None)
  Receive Date: 20090428
  Receipt Date: 20090416
  Transmission Date: 20091009
  Serious: Yes (Other)
  Sender: FDA-Public Use
  Company Number: CA-PFIZER INC-2009199920

PATIENT

DRUGS (1)
  1. ETHINYL ESTRADIOL AND NORETHINDRONE [Suspect]

REACTIONS (1)
  - HAEMANGIOMA OF LIVER [None]
